FAERS Safety Report 5772229-1 (Version None)
Quarter: 2008Q2

REPORT INFORMATION
  Report Type: 
  Country: None (occurrence: None)
  Receive Date: 20080613
  Receipt Date: 20080530
  Transmission Date: 20081010
  Serious: Yes (Death, Hospitalization)
  Sender: FDA-Public Use
  Company Number: JP-ELI_LILLY_AND_COMPANY-JP200805001709

PATIENT
  Sex: Female
  Weight: 53 kg

DRUGS (10)
  1. GEMZAR [Suspect]
     Indication: PANCREATIC CARCINOMA STAGE IV
     Dosage: 1400 MG, OTHER
     Route: 042
     Dates: start: 20071011, end: 20071024
  2. KYTRIL [Concomitant]
     Indication: PROPHYLAXIS OF NAUSEA AND VOMITING
     Dosage: 3 MG, DAILY (1/D)
     Route: 042
     Dates: start: 20071024, end: 20071024
  3. LOPERAMIDE HCL [Concomitant]
     Indication: DIARRHOEA
     Dosage: 2 MG, DAILY (1/D)
     Route: 048
     Dates: start: 20071016, end: 20080225
  4. LAC B [Concomitant]
     Indication: DIARRHOEA
     Dosage: 3 G, DAILY (1/D)
     Route: 048
     Dates: start: 20071016, end: 20080225
  5. SEVEN EP [Concomitant]
     Indication: DIARRHOEA
     Dosage: 3 D/F, DAILY (1/D)
     Route: 048
     Dates: start: 20071024, end: 20080225
  6. PRIMPERAN                               /SCH/ [Concomitant]
     Indication: NAUSEA
     Dosage: 15 MG, DAILY (1/D)
     Route: 048
     Dates: start: 20071024, end: 20080225
  7. SOLANAX [Concomitant]
     Indication: ANXIETY DISORDER
     Dosage: 1.2 MG, DAILY (1/D)
     Route: 048
     Dates: start: 20071024, end: 20080331
  8. ASPIRIN [Concomitant]
     Indication: CEREBRAL INFARCTION
     Dosage: 100 MG, DAILY (1/D)
     Route: 048
     Dates: start: 20071030, end: 20080331
  9. ROHYPNOL [Concomitant]
     Indication: ANXIETY DISORDER
     Dosage: 1.5 MG, DAILY (1/D)
     Route: 048
     Dates: start: 20071107, end: 20080331
  10. BETAMETHASONE [Concomitant]
     Indication: MALAISE
     Dosage: 2 MG, DAILY (1/D)
     Route: 048
     Dates: start: 20080306, end: 20080331

REACTIONS (4)
  - HEPATIC FAILURE [None]
  - JAUNDICE [None]
  - LIVER DISORDER [None]
  - VOMITING [None]
